FAERS Safety Report 22363542 (Version 1)
Quarter: 2023Q2

REPORT INFORMATION
  Report Type: Spontaneous
  Country: US (occurrence: US)
  Receive Date: 20230525
  Receipt Date: 20230525
  Transmission Date: 20230722
  Serious: No
  Sender: FDA-Public Use
  Company Number: US-TOLMAR, INC.-23US040110

PATIENT
  Sex: Male

DRUGS (1)
  1. JATENZO [Suspect]
     Active Substance: TESTOSTERONE UNDECANOATE
     Indication: Blood testosterone decreased
     Dosage: 198 MILLIGRAM, BID
     Route: 048

REACTIONS (7)
  - Malaise [Unknown]
  - Vascular calcification [Unknown]
  - Inappropriate schedule of product administration [Unknown]
  - Muscle rigidity [Recovering/Resolving]
  - Feeling abnormal [Unknown]
  - Blood pressure increased [Recovering/Resolving]
  - Heart rate increased [Unknown]
